FAERS Safety Report 19124540 (Version 1)
Quarter: 2021Q2

REPORT INFORMATION
  Report Type: Spontaneous
  Country: IT (occurrence: IT)
  Receive Date: 20210413
  Receipt Date: 20210413
  Transmission Date: 20210717
  Serious: Yes (Other)
  Sender: FDA-Public Use
  Company Number: IT-LUPIN PHARMACEUTICALS INC.-2021-04564

PATIENT
  Age: 39 Year
  Sex: Female
  Weight: 97 kg

DRUGS (12)
  1. CORTISONE ACETATE. [Suspect]
     Active Substance: CORTISONE ACETATE
     Dosage: 12.5 MILLIGRAM, QD (ON POSTPARTUM DAY 2)
     Route: 048
     Dates: start: 2020
  2. HYDROCORTISONE. [Suspect]
     Active Substance: HYDROCORTISONE
     Indication: ADRENOCORTICAL INSUFFICIENCY ACUTE
     Dosage: 100 MILLIGRAM BOLUS DOSE (ROUTE: INFUSION)
     Route: 065
     Dates: start: 2020, end: 2020
  3. CORTISONE ACETATE. [Suspect]
     Active Substance: CORTISONE ACETATE
     Dosage: 75 MILLIGRAM, QD
     Route: 048
     Dates: start: 2020
  4. HYDROCORTISONE. [Suspect]
     Active Substance: HYDROCORTISONE
     Dosage: 50 MILLIGRAM, QID
     Route: 042
  5. CORTISONE ACETATE. [Suspect]
     Active Substance: CORTISONE ACETATE
     Indication: ADRENOGENITAL SYNDROME
     Dosage: 25 MILLIGRAM, QD (ON POSTPARTUM DAY 2)
     Route: 048
     Dates: start: 2020
  6. CORTISONE ACETATE. [Suspect]
     Active Substance: CORTISONE ACETATE
     Dosage: 12.5 MILLIGRAM, QD (IN THE MORNING)
     Route: 042
  7. HYDROCORTISONE. [Suspect]
     Active Substance: HYDROCORTISONE
     Indication: COVID-19
     Dosage: 200 MILLIGRAM, QD (ROUTE: INFUSION)
     Route: 065
     Dates: start: 2020, end: 2020
  8. DEXAMETHASONE. [Suspect]
     Active Substance: DEXAMETHASONE
     Indication: ADRENOGENITAL SYNDROME
     Dosage: 0.75 MILLIGRAM, QD (IN THE MORNING)
     Route: 065
  9. AZITHROMYCIN ANHYDROUS. [Suspect]
     Active Substance: AZITHROMYCIN ANHYDROUS
     Indication: COVID-19
     Dosage: UNK
     Route: 065
     Dates: start: 2020
  10. HYDROXYCHLOROQUINE [Suspect]
     Active Substance: HYDROXYCHLOROQUINE
     Indication: COVID-19
     Dosage: UNK
     Route: 065
     Dates: start: 2020
  11. PARACETAMOL [Suspect]
     Active Substance: ACETAMINOPHEN
     Indication: HYPERPYREXIA
     Dosage: UNK
     Route: 065
  12. CORTISONE ACETATE. [Suspect]
     Active Substance: CORTISONE ACETATE
     Dosage: 12.5 MILLIGRAM, QD (ON POSTPARTUM DAY 2 DOSE)
     Route: 048
     Dates: start: 2020

REACTIONS (3)
  - Premature delivery [Unknown]
  - Maternal exposure during delivery [Unknown]
  - Off label use [Unknown]

NARRATIVE: CASE EVENT DATE: 2020
